FAERS Safety Report 23542662 (Version 1)
Quarter: 2024Q1

REPORT INFORMATION
  Report Type: Spontaneous
  Country: BT (occurrence: BT)
  Receive Date: 20240220
  Receipt Date: 20240220
  Transmission Date: 20240410
  Serious: Yes (Other)
  Sender: FDA-Public Use
  Company Number: BT-ALKEM LABORATORIES LIMITED-BT-ALKEM-2023-13591

PATIENT
  Age: 40 Year
  Sex: Male

DRUGS (1)
  1. TRIAMCINOLONE ACETONIDE [Suspect]
     Active Substance: TRIAMCINOLONE ACETONIDE
     Indication: Oral submucosal fibrosis
     Dosage: 1 MILLILITER, (TWICE A WEEK)
     Route: 026

REACTIONS (1)
  - Cushing^s syndrome [Unknown]
